FAERS Safety Report 5902480-9 (Version None)
Quarter: 2008Q3

REPORT INFORMATION
  Report Type: 
  Country: None (occurrence: None)
  Receive Date: 20080929
  Receipt Date: 20080925
  Transmission Date: 20090109
  Serious: Yes (Other)
  Sender: FDA-Public Use
  Company Number: JP-ASTRAZENECA-2008AP07517

PATIENT
  Age: 86 Year

DRUGS (4)
  1. DIPRIVAN [Suspect]
     Indication: SEDATION
     Dosage: 5.5 ML/H
     Route: 042
     Dates: start: 20080825, end: 20080904
  2. DIPRIVAN [Suspect]
     Dosage: 4 ML/H
     Route: 042
     Dates: start: 20080905, end: 20080915
  3. DIPRIVAN [Suspect]
     Dosage: 1 ML/H (ONLY AT NIGHT)
     Route: 042
     Dates: start: 20080916, end: 20080918
  4. DIPRIVAN [Suspect]
     Dosage: 0.5 ML/H (ONLY AT NIGHT)
     Route: 042
     Dates: start: 20080919, end: 20080922

REACTIONS (1)
  - DELAYED RECOVERY FROM ANAESTHESIA [None]
